FAERS Safety Report 16851985 (Version 5)
Quarter: 2019Q4

REPORT INFORMATION
  Report Type: Spontaneous
  Country: ES (occurrence: ES)
  Receive Date: 20190925
  Receipt Date: 20191211
  Transmission Date: 20200122
  Serious: Yes (Hospitalization, Other)
  Sender: FDA-Public Use
  Company Number: ES-009507513-1909ESP008354

PATIENT
  Age: 38 Year
  Sex: Male

DRUGS (4)
  1. MEROPENEM. [Suspect]
     Active Substance: MEROPENEM
     Indication: PRODUCT USED FOR UNKNOWN INDICATION
     Dosage: UNK
     Route: 065
  2. DAPTOMYCIN. [Suspect]
     Active Substance: DAPTOMYCIN
     Indication: ANTIBIOTIC PROPHYLAXIS
     Dosage: UNK
     Route: 065
     Dates: start: 2019, end: 2019
  3. ZERBAXA [Suspect]
     Active Substance: CEFTOLOZANE SULFATE\TAZOBACTAM SODIUM
     Indication: PNEUMONIA PSEUDOMONAL
     Dosage: UNK
     Route: 065
  4. MYCOPHENOLATE SODIUM [Concomitant]
     Active Substance: MYCOPHENOLATE SODIUM
     Dosage: UNK

REACTIONS (9)
  - Cytomegalovirus test positive [Unknown]
  - Septic shock [Unknown]
  - Transplant rejection [Unknown]
  - Pneumonia necrotising [Unknown]
  - Respiratory failure [Recovering/Resolving]
  - Pneumonia pseudomonal [Unknown]
  - Lung infiltration [Unknown]
  - Acute kidney injury [Unknown]
  - Product use in unapproved indication [Unknown]

NARRATIVE: CASE EVENT DATE: 2019
